FAERS Safety Report 22311699 (Version 6)
Quarter: 2023Q4

REPORT INFORMATION
  Report Type: Spontaneous
  Country: JP (occurrence: JP)
  Receive Date: 20230512
  Receipt Date: 20231220
  Transmission Date: 20240110
  Serious: Yes (Hospitalization)
  Sender: FDA-Public Use
  Company Number: JP-ABBVIE-4762759

PATIENT
  Age: 46 Year
  Sex: Male
  Weight: 49 kg

DRUGS (9)
  1. HUMIRA [Suspect]
     Active Substance: ADALIMUMAB
     Indication: Crohn^s disease
     Route: 058
     Dates: start: 201810, end: 202002
  2. SKYRIZI [Suspect]
     Active Substance: RISANKIZUMAB-RZAA
     Indication: Crohn^s disease
     Dosage: FORM STRENGTH: 600 MILLIGRAM
     Route: 041
     Dates: start: 20230428
  3. SKYRIZI [Suspect]
     Active Substance: RISANKIZUMAB-RZAA
     Indication: Crohn^s disease
     Dosage: FORM STRENGTH: 600 MILLIGRAM
     Route: 041
     Dates: start: 20230619
  4. SKYRIZI [Suspect]
     Active Substance: RISANKIZUMAB-RZAA
     Indication: Crohn^s disease
     Dosage: FORM STRENGTH: 600 MILLIGRAM
     Route: 041
     Dates: start: 20230718
  5. AZATHIOPRINE [Concomitant]
     Active Substance: AZATHIOPRINE
     Indication: Crohn^s disease
     Dosage: 50 MILLIGRAM
     Route: 048
  6. AMINO ACIDS\CARBOHYDRATES\MINERALS\SOYBEAN OIL\VITAMINS [Concomitant]
     Active Substance: AMINO ACIDS\CARBOHYDRATES\MINERALS\SOYBEAN OIL\VITAMINS
     Indication: Crohn^s disease
     Dosage: TIME INTERVAL: 0.33333333 DAYS: FREQUENCY: 0.333DAYS ?3 DOSAGE FORMS
     Route: 048
     Dates: start: 20230622
  7. CLOSTRIDIUM BUTYRICUM SPORES STRAIN M-55 [Concomitant]
     Active Substance: CLOSTRIDIUM BUTYRICUM SPORES STRAIN M-55
     Indication: Diarrhoea
     Dosage: TIME INTERVAL: 0.33333333 DAYS: 3 GRAM
     Route: 048
  8. POLAPREZINC [Concomitant]
     Active Substance: POLAPREZINC
     Indication: Chronic gastritis
     Dosage: FREQUENCY: 0.5 DAYS?DOSE TEXT: 150 MILLIGRAM
     Route: 048
  9. MESALAMINE [Concomitant]
     Active Substance: MESALAMINE
     Indication: Crohn^s disease
     Dosage: FREQUENCY: 0.5 DAYS?FORM STRENGTH: 2000 MILLIGRAM, FORM STRENGTH: 500 MILLIGRAM
     Route: 048

REACTIONS (4)
  - Granulomatous liver disease [Recovering/Resolving]
  - Pyrexia [Recovering/Resolving]
  - Pyrexia [Recovering/Resolving]
  - Pulmonary mass [Recovering/Resolving]

NARRATIVE: CASE EVENT DATE: 20230429
